FAERS Safety Report 6341847-4 (Version None)
Quarter: 2009Q3

REPORT INFORMATION
  Report Type: 
  Country: None (occurrence: None)
  Receive Date: 20090904
  Receipt Date: 20090828
  Transmission Date: 20100115
  Serious: Yes (Death, Other)
  Sender: FDA-Public Use
  Company Number: US-AMGEN-QUU336743

PATIENT
  Sex: Female
  Weight: 59 kg

DRUGS (10)
  1. ENBREL [Suspect]
     Indication: RHEUMATOID ARTHRITIS
     Route: 058
     Dates: start: 20050201, end: 20081101
  2. MOBIC [Concomitant]
  3. METHOTREXATE [Concomitant]
     Dates: start: 20070301, end: 20081001
  4. NORVASC [Concomitant]
  5. SKELAXIN [Concomitant]
  6. ACTONEL [Concomitant]
  7. FOLIC ACID [Concomitant]
  8. TRAZODONE [Concomitant]
  9. EFFEXOR [Concomitant]
  10. KEPPRA [Concomitant]

REACTIONS (2)
  - ANAEMIA [None]
  - COLON CANCER [None]
